FAERS Safety Report 24767274 (Version 4)
Quarter: 2025Q1

REPORT INFORMATION
  Report Type: Spontaneous
  Country: US (occurrence: US)
  Receive Date: 20241223
  Receipt Date: 20250311
  Transmission Date: 20250408
  Serious: Yes (Hospitalization)
  Sender: IPSEN BIOPHARMACEUTICALS, INC.
  Company Number: US-IPSEN Group, Research and Development-2024-24901

PATIENT
  Age: 59 Year
  Sex: Female
  Weight: 65 kg

DRUGS (29)
  1. TAZVERIK [Suspect]
     Active Substance: TAZEMETOSTAT HYDROBROMIDE
     Indication: B-cell lymphoma
     Dosage: 800 MG TWICE DAILY
     Route: 048
     Dates: start: 20241126, end: 20250121
  2. TAZVERIK [Suspect]
     Active Substance: TAZEMETOSTAT HYDROBROMIDE
     Indication: Off label use
     Dosage: 800 MG TWICE DAILY
     Route: 048
     Dates: start: 20250123
  3. TAZVERIK [Suspect]
     Active Substance: TAZEMETOSTAT HYDROBROMIDE
     Indication: Iron deficiency anaemia
  4. AMOXICILLIN [Concomitant]
     Active Substance: AMOXICILLIN
  5. GUAIFENESIN [Concomitant]
     Active Substance: GUAIFENESIN
  6. AFRIN [Concomitant]
     Active Substance: OXYMETAZOLINE HYDROCHLORIDE
     Route: 045
  7. ACETAMINOPHEN [Concomitant]
     Active Substance: ACETAMINOPHEN
  8. ALLEGRA [Concomitant]
     Active Substance: FEXOFENADINE HYDROCHLORIDE
  9. ASPIRIN [Concomitant]
     Active Substance: ASPIRIN
  10. ATENOLOL [Concomitant]
     Active Substance: ATENOLOL
  11. BACLOFEN [Concomitant]
     Active Substance: BACLOFEN
  12. BIOTIN [Concomitant]
     Active Substance: BIOTIN
  13. DOCUSATE [Concomitant]
     Active Substance: DOCUSATE
  14. FAMOTIDINE [Concomitant]
     Active Substance: FAMOTIDINE
  15. FLONASE [Concomitant]
     Active Substance: FLUTICASONE PROPIONATE
  16. LORAZEPAM [Concomitant]
     Active Substance: LORAZEPAM
  17. NEURONTIN [Concomitant]
     Active Substance: GABAPENTIN
  18. ONDANSETRON [Concomitant]
     Active Substance: ONDANSETRON
  19. SIMETHICONE (DIMETHICONE) [Concomitant]
     Active Substance: DIMETHICONE
  20. TERBINAFINE [Concomitant]
     Active Substance: TERBINAFINE
  21. TRAMADOL [Concomitant]
     Active Substance: TRAMADOL
  22. ALPHA LIPOIC ACID [Concomitant]
     Active Substance: .ALPHA.-LIPOIC ACID
  23. CALCIUM\VITAMIN D [Concomitant]
     Active Substance: CALCIUM\VITAMIN D
  24. CLARITIN [Concomitant]
     Active Substance: LORATADINE
  25. ESTRADIOL [Concomitant]
     Active Substance: ESTRADIOL
  26. FOSFOMYCIN [Concomitant]
     Active Substance: FOSFOMYCIN
  27. ARGININE [Concomitant]
     Active Substance: ARGININE
  28. ZEPBOUND [Concomitant]
     Active Substance: TIRZEPATIDE
  29. PRONUTRIENTS [Concomitant]

REACTIONS (11)
  - Urinary tract infection [Recovering/Resolving]
  - Influenza [Recovering/Resolving]
  - Arthritis [Not Recovered/Not Resolved]
  - Nausea [Recovering/Resolving]
  - Diarrhoea [Not Recovered/Not Resolved]
  - Malaise [Recovering/Resolving]
  - Nasal congestion [Not Recovered/Not Resolved]
  - Cough [Not Recovered/Not Resolved]
  - Headache [Not Recovered/Not Resolved]
  - Off label use [Unknown]
  - Product dose omission issue [Unknown]

NARRATIVE: CASE EVENT DATE: 20241126
